FAERS Safety Report 4999770-3 (Version None)
Quarter: 2006Q2

REPORT INFORMATION
  Report Type: 
  Country: None (occurrence: None)
  Receive Date: 20060511
  Receipt Date: 20060504
  Transmission Date: 20061013
  Serious: Yes (Life-Threatening)
  Sender: FDA-Public Use
  Company Number: IS-GLAXOSMITHKLINE-B0423275A

PATIENT
  Age: 29 Year
  Sex: Female

DRUGS (3)
  1. AUGMENTIN '125' [Suspect]
     Indication: PNEUMONIA
     Dosage: 625MG THREE TIMES PER DAY
     Route: 048
     Dates: start: 20051213, end: 20051223
  2. HERBALIFE [Concomitant]
     Route: 065
  3. DIETARY SUPPLEMENT [Concomitant]

REACTIONS (2)
  - HEPATITIS [None]
  - JAUNDICE [None]
